FAERS Safety Report 18338233 (Version 1)
Quarter: 2020Q4

REPORT INFORMATION
  Report Type: Spontaneous
  Country: US (occurrence: US)
  Receive Date: 20201001
  Receipt Date: 20201001
  Transmission Date: 20210113
  Serious: No
  Sender: FDA-Public Use
  Company Number: None

PATIENT
  Age: 10 Month
  Sex: Female
  Weight: 9 kg

DRUGS (1)
  1. DEXAMETHASONE. [Suspect]
     Active Substance: DEXAMETHASONE
     Indication: CROUP INFECTIOUS
     Dates: start: 20200930, end: 20200930

REACTIONS (3)
  - Decreased appetite [None]
  - Irritability [None]
  - Incorrect dose administered [None]

NARRATIVE: CASE EVENT DATE: 20200930
